FAERS Safety Report 8553346-X (Version None)
Quarter: 2012Q3

REPORT INFORMATION
  Report Type: 
  Country: None (occurrence: None)
  Receive Date: 20120731
  Receipt Date: 20120727
  Transmission Date: 20120928
  Serious: No
  Sender: FDA-Public Use
  Company Number: US-TEVA-350932USA

PATIENT
  Sex: Female
  Weight: 61.29 kg

DRUGS (2)
  1. PLAN B ONE-STEP [Suspect]
     Indication: POST COITAL CONTRACEPTION
     Dosage: 1.5 MILLIGRAM;
     Route: 048
     Dates: start: 20120723, end: 20120723
  2. PARAGARD COPPER [Suspect]
     Indication: CONTRACEPTION
     Route: 015
     Dates: start: 20120724

REACTIONS (1)
  - MENSTRUATION IRREGULAR [None]
